FAERS Safety Report 17157077 (Version 1)
Quarter: 2019Q4

REPORT INFORMATION
  Report Type: Spontaneous
  Country: US (occurrence: US)
  Receive Date: 20191121
  Receipt Date: 20191121
  Transmission Date: 20200122
  Serious: No
  Sender: FDA-Public Use
  Company Number: None

PATIENT
  Age: 64 Year
  Sex: Female

DRUGS (1)
  1. OPSUMIT [Suspect]
     Active Substance: MACITENTAN
     Indication: PULMONARY HYPERTENSION
     Route: 048
     Dates: start: 20190930, end: 20191015

REACTIONS (11)
  - Diarrhoea [None]
  - Gastrointestinal disorder [None]
  - Headache [None]
  - Oedema peripheral [None]
  - Abdominal discomfort [None]
  - Flushing [None]
  - Vomiting [None]
  - Drug ineffective [None]
  - Impaired work ability [None]
  - Malaise [None]
  - Intentional product use issue [None]

NARRATIVE: CASE EVENT DATE: 20191023
